FAERS Safety Report 24622300 (Version 2)
Quarter: 2024Q4

REPORT INFORMATION
  Report Type: Spontaneous
  Country: BR (occurrence: BR)
  Receive Date: 20241114
  Receipt Date: 20241202
  Transmission Date: 20250115
  Serious: Yes (Other)
  Sender: TAKEDA
  Company Number: BR-TAKEDA-2024TUS113155

PATIENT
  Sex: Female
  Weight: 58 kg

DRUGS (5)
  1. MESALAMINE [Suspect]
     Active Substance: MESALAMINE
     Indication: Crohn^s disease
     Dosage: 250 MILLIGRAM, BID
  2. MESALAMINE [Suspect]
     Active Substance: MESALAMINE
     Indication: Gastrointestinal haemorrhage
  3. PURAN [Concomitant]
     Active Substance: LEVOTHYROXINE SODIUM
     Indication: Thyroid therapy
     Dosage: 50 MICROGRAM
  4. MEBEVERINE [Concomitant]
     Active Substance: MEBEVERINE
     Indication: Abdominal pain upper
     Dosage: 200 MILLIGRAM
  5. MESALAMINE [Concomitant]
     Active Substance: MESALAMINE
     Indication: Crohn^s disease
     Dosage: 500 MILLIGRAM

REACTIONS (6)
  - Rectal haemorrhage [Unknown]
  - Gastrointestinal haemorrhage [Unknown]
  - Product physical consistency issue [Unknown]
  - Product quality issue [Unknown]
  - Illness [Unknown]
  - Memory impairment [Unknown]
